FAERS Safety Report 19275298 (Version 3)
Quarter: 2021Q4

REPORT INFORMATION
  Report Type: Spontaneous
  Country: BR (occurrence: BR)
  Receive Date: 20210519
  Receipt Date: 20211116
  Transmission Date: 20220303
  Serious: No
  Sender: FDA-Public Use
  Company Number: BR-PFIZER INC-2021493189

PATIENT
  Age: 5 Month
  Sex: Male

DRUGS (1)
  1. NIMENRIX [Suspect]
     Active Substance: CLOSTRIDIUM TETANI TOXOID ANTIGEN (FORMALDEHYDE INACTIVATED)\MENINGOCOCCAL POLYSACCHARIDE VACCINE, G
     Indication: Immunisation
     Dosage: DOSE 2, SINGLE
     Dates: start: 20210426, end: 20210426

REACTIONS (4)
  - Needle issue [Unknown]
  - Syringe issue [Unknown]
  - Product leakage [Unknown]
  - Incorrect dose administered [Unknown]
